FAERS Safety Report 6045499-2 (Version None)
Quarter: 2009Q1

REPORT INFORMATION
  Report Type: 
  Country: None (occurrence: None)
  Receive Date: 20090121
  Receipt Date: 20090115
  Transmission Date: 20090719
  Serious: Yes (Death)
  Sender: FDA-Public Use
  Company Number: A0763613A

PATIENT
  Age: 81 Year
  Sex: Male

DRUGS (6)
  1. ADVAIR DISKUS 100/50 [Suspect]
     Dosage: 1PUFF TWICE PER DAY
     Route: 055
  2. VENTOLIN [Suspect]
     Route: 055
  3. FENTANYL TRANSDERMAL SYSTEM [Concomitant]
  4. SPIRIVA [Concomitant]
  5. LISINOPRIL [Concomitant]
  6. OXYCODONE [Concomitant]

REACTIONS (1)
  - LUNG NEOPLASM MALIGNANT [None]
